FAERS Safety Report 22333757 (Version 1)
Quarter: 2023Q2

REPORT INFORMATION
  Report Type: Spontaneous
  Country: US (occurrence: US)
  Receive Date: 20230517
  Receipt Date: 20230517
  Transmission Date: 20230722
  Serious: Yes (Other)
  Sender: FDA-Public Use
  Company Number: US-MYLANLABS-2023M1050233

PATIENT
  Age: 71 Year
  Sex: Female
  Weight: 58.97 kg

DRUGS (5)
  1. ALPRAZOLAM [Suspect]
     Active Substance: ALPRAZOLAM
     Indication: Depression
     Dosage: UNK UNK, QD, (2MG IN MORNING, HALF IN AFTERNOON, 2 MG AT NIGHT)
     Route: 065
  2. ALPRAZOLAM [Suspect]
     Active Substance: ALPRAZOLAM
     Indication: Anxiety
  3. VARICELLA-ZOSTER VIRUS STRAIN OKA/MERCK LIVE ANTIGEN [Suspect]
     Active Substance: VARICELLA-ZOSTER VIRUS STRAIN OKA/MERCK LIVE ANTIGEN
     Indication: Herpes zoster
     Dosage: UNK
     Route: 065
     Dates: start: 202301
  4. LEXAPRO [Concomitant]
     Active Substance: ESCITALOPRAM OXALATE
     Dosage: UNK
     Route: 065
  5. PREVACID [Concomitant]
     Active Substance: LANSOPRAZOLE
     Dosage: UNK
     Route: 065

REACTIONS (6)
  - Sepsis [Unknown]
  - Herpes zoster [Unknown]
  - Crying [Unknown]
  - Abdominal discomfort [Unknown]
  - Tremor [Unknown]
  - Extra dose administered [Unknown]

NARRATIVE: CASE EVENT DATE: 20230101
